FAERS Safety Report 23025970 (Version 1)
Quarter: 2023Q4

REPORT INFORMATION
  Report Type: Spontaneous
  Country: GB (occurrence: GB)
  Receive Date: 20231004
  Receipt Date: 20231004
  Transmission Date: 20240109
  Serious: Yes (Other)
  Sender: FDA-Public Use
  Company Number: None

PATIENT
  Age: 36 Year
  Sex: Male
  Weight: 90 kg

DRUGS (8)
  1. BRIVIACT [Suspect]
     Active Substance: BRIVARACETAM
     Indication: Epilepsy
     Dosage: 25MG TB FOR 2 WEEKS
     Dates: start: 20221001
  2. BRIVIACT [Suspect]
     Active Substance: BRIVARACETAM
     Dosage: 50MG TB FOR 2 WEEKS
  3. BRIVIACT [Suspect]
     Active Substance: BRIVARACETAM
     Dosage: 75MG TB UNTIL MID AUGUST THEN REDUCED SLOWLY UNTIL THE...
     Dates: end: 20230903
  4. CLOBAZAM [Concomitant]
     Active Substance: CLOBAZAM
     Indication: Epilepsy
     Dates: start: 199610
  5. GABAPENTIN [Concomitant]
     Active Substance: GABAPENTIN
     Indication: Epilepsy
     Dates: start: 200504
  6. TRILEPTAL [Concomitant]
     Active Substance: OXCARBAZEPINE
     Indication: Epilepsy
     Dates: start: 200011
  7. CLOBAZAM [Concomitant]
     Active Substance: CLOBAZAM
     Indication: Epilepsy
     Dosage: UNK
     Dates: start: 200504
  8. VITAMIN B6 [Concomitant]
     Active Substance: PYRIDOXINE HYDROCHLORIDE
     Indication: Product used for unknown indication
     Dosage: 50MG X 3 PER DAY

REACTIONS (4)
  - Obsessive-compulsive disorder [Recovered/Resolved with Sequelae]
  - Weight increased [Not Recovered/Not Resolved]
  - Anxiety [Recovering/Resolving]
  - Physical assault [Recovering/Resolving]

NARRATIVE: CASE EVENT DATE: 20221016
